FAERS Safety Report 13377271 (Version 1)
Quarter: 2017Q1

REPORT INFORMATION
  Report Type: Spontaneous
  Country: GB (occurrence: None)
  Receive Date: 20170327
  Receipt Date: 20170327
  Transmission Date: 20170429
  Serious: Yes (Other)
  Sender: FDA-Public Use
  Company Number: GB2017K1790SPO

PATIENT
  Sex: Female

DRUGS (10)
  1. ARIPIPRAZOLE GENERIC (ARIPIPRAZOLE FUMARATE) UNKNOWN [Suspect]
     Active Substance: ARIPIPRAZOLE
     Dates: start: 201701
  2. ALENDRONIC ACID (ALENDRONIC ACID) [Suspect]
     Active Substance: ALENDRONIC ACID
     Indication: PRODUCT USED FOR UNKNOWN INDICATION
     Dates: start: 201402
  3. AMLODIPINE [Suspect]
     Active Substance: AMLODIPINE BESYLATE
     Dates: start: 201307
  4. AMITRIPTYLINE [Suspect]
     Active Substance: AMITRIPTYLINE
     Indication: PRODUCT USED FOR UNKNOWN INDICATION
  5. ADCAL-D3 (CALCIUM CARBONATE, COLECALCIFEROL) [Concomitant]
  6. DOXAZOSIN WORLD (DOXAZOSIN MESYLATE) UNKNOWN [Suspect]
     Active Substance: DOXAZOSIN MESYLATE
     Dates: start: 1990
  7. LANSOPRAZOLE GENERIC (LANSOPRAZOLE) UNKNOWN [Suspect]
     Active Substance: LANSOPRAZOLE
  8. BISOPROLOL SANDOZ (BISOPROLOL FUMARATE) UNKNOWN [Suspect]
     Active Substance: BISOPROLOL FUMARATE
     Dates: start: 201611
  9. PROLIA [Concomitant]
     Active Substance: DENOSUMAB
  10. OXPRENOLOL (OXPRENOLOL) [Suspect]
     Active Substance: OXPRENOLOL
     Indication: PRODUCT USED FOR UNKNOWN INDICATION

REACTIONS (14)
  - Rectal prolapse [None]
  - Dysuria [None]
  - Rhinorrhoea [None]
  - Muscle spasms [None]
  - Bone pain [None]
  - Arthralgia [None]
  - Headache [None]
  - Constipation [None]
  - Pain [None]
  - Influenza [None]
  - Infection [None]
  - Dyspnoea [None]
  - Burning sensation [None]
  - Myalgia [None]
